FAERS Safety Report 5965306-3 (Version None)
Quarter: 2008Q4

REPORT INFORMATION
  Report Type: 
  Country: None (occurrence: None)
  Receive Date: 20081125
  Receipt Date: 20081113
  Transmission Date: 20090506
  Serious: Yes (Other)
  Sender: FDA-Public Use
  Company Number: US-ROCHE-579677

PATIENT
  Sex: Male
  Weight: 77.6 kg

DRUGS (4)
  1. ACCUTANE [Suspect]
     Route: 048
     Dates: start: 20031203, end: 20040122
  2. ACCUTANE [Suspect]
     Route: 048
     Dates: start: 20040223, end: 20040326
  3. ACCUTANE [Suspect]
     Route: 048
     Dates: start: 20050919, end: 20051017
  4. ACCUTANE [Suspect]
     Route: 048
     Dates: start: 20051018, end: 20060317

REACTIONS (12)
  - ABDOMINAL PAIN [None]
  - CHAPPED LIPS [None]
  - COLITIS ULCERATIVE [None]
  - DEPRESSED MOOD [None]
  - DRY EYE [None]
  - DRY SKIN [None]
  - HERNIA [None]
  - ILEITIS [None]
  - INFLAMMATORY BOWEL DISEASE [None]
  - INTESTINAL HAEMORRHAGE [None]
  - LIP DRY [None]
  - NASAL DRYNESS [None]
